FAERS Safety Report 6380632-4 (Version None)
Quarter: 2009Q3

REPORT INFORMATION
  Report Type: 
  Country: None (occurrence: None)
  Receive Date: 20090929
  Receipt Date: 20090915
  Transmission Date: 20100115
  Serious: Yes (Hospitalization, Other)
  Sender: FDA-Public Use
  Company Number: GB-MYLANLABS-2009S1005753

PATIENT
  Age: 56 Year
  Sex: Female

DRUGS (3)
  1. AMISULPRIDE [Suspect]
     Indication: SCHIZOAFFECTIVE DISORDER
  2. LAMOTRIGINE [Suspect]
     Indication: TEMPORAL LOBE EPILEPSY
  3. LAMOTRIGINE [Suspect]

REACTIONS (5)
  - CATATONIA [None]
  - DERMATITIS ALLERGIC [None]
  - NEUROLEPTIC MALIGNANT SYNDROME [None]
  - TEMPORAL LOBE EPILEPSY [None]
  - WITHDRAWAL SYNDROME [None]
